FAERS Safety Report 6445037-6 (Version None)
Quarter: 2009Q4

REPORT INFORMATION
  Report Type: 
  Country: None (occurrence: None)
  Receive Date: 20091118
  Receipt Date: 20091113
  Transmission Date: 20100525
  Serious: Yes (Death)
  Sender: FDA-Public Use
  Company Number: JP-PFIZER INC-2009299193

PATIENT
  Age: 66 Year
  Sex: Male
  Weight: 63 kg

DRUGS (7)
  1. RIFABUTIN [Suspect]
     Indication: MYCOBACTERIUM AVIUM COMPLEX INFECTION
     Dosage: 150 MG, 1X/DAY
     Route: 048
     Dates: start: 20090625, end: 20091005
  2. ESANBUTOL [Concomitant]
  3. KLARICID [Concomitant]
  4. BIOFERMIN R [Concomitant]
     Dates: start: 20090803
  5. GANATON [Concomitant]
     Dates: start: 20090824
  6. ZANTAC [Concomitant]
     Dates: start: 20090824
  7. RIFAMPICIN [Concomitant]

REACTIONS (1)
  - PNEUMONIA [None]
